FAERS Safety Report 10633164 (Version 1)
Quarter: 2014Q4

REPORT INFORMATION
  Report Type: Spontaneous
  Country: US (occurrence: US)
  Receive Date: 20141205
  Receipt Date: 20141205
  Transmission Date: 20150529
  Serious: No
  Sender: FDA-Public Use
  Company Number: US-BRISTOL-MYERS SQUIBB COMPANY-21523642

PATIENT
  Age: 62 Year
  Sex: Female

DRUGS (14)
  1. VOLTAREN [Concomitant]
     Active Substance: DICLOFENAC SODIUM
  2. WELCHOL [Concomitant]
     Active Substance: COLESEVELAM HYDROCHLORIDE
  3. VENLAFAXINE HCL [Concomitant]
     Active Substance: VENLAFAXINE HYDROCHLORIDE
  4. CALCIUM [Concomitant]
     Active Substance: CALCIUM
  5. ONDANSETRON [Concomitant]
     Active Substance: ONDANSETRON
  6. CLOBETASOL [Concomitant]
     Active Substance: CLOBETASOL
  7. VITAMIN D3 [Concomitant]
     Active Substance: CHOLECALCIFEROL
  8. GABAPENTIN. [Concomitant]
     Active Substance: GABAPENTIN
  9. BETAMETHASONE [Concomitant]
     Active Substance: BETAMETHASONE
  10. ORENCIA [Suspect]
     Active Substance: ABATACEPT
  11. MULTIVITAMIN [Concomitant]
     Active Substance: VITAMINS
  12. BENADRYL [Concomitant]
     Active Substance: DIPHENHYDRAMINE HYDROCHLORIDE
  13. URSODIOL. [Concomitant]
     Active Substance: URSODIOL
  14. REQUIP [Concomitant]
     Active Substance: ROPINIROLE HYDROCHLORIDE

REACTIONS (1)
  - Paraesthesia [Unknown]
